FAERS Safety Report 10359915 (Version 1)
Quarter: 2014Q3

REPORT INFORMATION
  Report Type: Spontaneous
  Country: US (occurrence: US)
  Receive Date: 20140804
  Receipt Date: 20140804
  Transmission Date: 20150326
  Serious: No
  Sender: FDA-Public Use
  Company Number: US-PFIZER INC-2014215152

PATIENT
  Age: 61 Year
  Sex: Female
  Weight: 59.86 kg

DRUGS (1)
  1. LYRICA [Suspect]
     Active Substance: PREGABALIN
     Indication: FIBROMYALGIA
     Dosage: 75 MG, 3X/DAY
     Dates: end: 2014

REACTIONS (2)
  - Skin disorder [Unknown]
  - Pain [Unknown]

NARRATIVE: CASE EVENT DATE: 20140701
